FAERS Safety Report 22589384 (Version 2)
Quarter: 2023Q2

REPORT INFORMATION
  Report Type: Other
  Country: CZ (occurrence: None)
  Receive Date: 20230612
  Receipt Date: 20230615
  Transmission Date: 20230722
  Serious: Yes (Other)
  Sender: FDA-Public Use
  Company Number: CZ-ROCHE-3365290

PATIENT
  Age: 35 Year
  Sex: Female

DRUGS (9)
  1. ATEZOLIZUMAB [Suspect]
     Active Substance: ATEZOLIZUMAB
     Indication: Triple negative breast cancer
     Route: 065
     Dates: start: 202109
  2. PACLITAXEL [Suspect]
     Active Substance: PACLITAXEL
     Indication: Triple negative breast cancer
     Route: 065
     Dates: start: 202109
  3. TAXOL [Suspect]
     Active Substance: PACLITAXEL
     Indication: Triple negative breast cancer
     Route: 065
  4. CAPECITABINE [Suspect]
     Active Substance: CAPECITABINE
     Indication: Triple negative breast cancer
     Dosage: 6 CYCLES
     Route: 065
     Dates: start: 202008, end: 202101
  5. CLARITHROMYCIN [Concomitant]
     Active Substance: CLARITHROMYCIN
  6. CISPLATIN [Concomitant]
     Active Substance: CISPLATIN
  7. GEMCITABINE [Concomitant]
     Active Substance: GEMCITABINE
  8. ZOLEDRONIC ACID [Concomitant]
     Active Substance: ZOLEDRONIC ACID
  9. SACITUZUMAB GOVITECAN [Concomitant]
     Active Substance: SACITUZUMAB GOVITECAN
     Dosage: ON DAYS 1 AND 8 OF A 21-DAY CYCLE
     Dates: start: 202208

REACTIONS (2)
  - Metastases to bone [Unknown]
  - Disease progression [Unknown]

NARRATIVE: CASE EVENT DATE: 20220201
